FAERS Safety Report 9155280 (Version 1)
Quarter: 2013Q1

REPORT INFORMATION
  Report Type: Spontaneous
  Country: BR (occurrence: BR)
  Receive Date: 20130311
  Receipt Date: 20130311
  Transmission Date: 20140127
  Serious: Yes (Other)
  Sender: FDA-Public Use
  Company Number: PHHY2012BR083206

PATIENT
  Age: 82 Year
  Sex: Female

DRUGS (5)
  1. STALEVO [Suspect]
     Indication: PARKINSON^S DISEASE
     Dosage: 1 DF, BID (200/50/12.5MG)
  2. MANTIDAN [Concomitant]
     Indication: PARKINSON^S DISEASE
     Dosage: 1 DF, BID
     Route: 048
  3. MANTIDAN [Concomitant]
     Dosage: 1 DF, BID
     Route: 048
  4. PROLOPA [Concomitant]
     Dosage: 0.5 DF, QID
     Route: 048
  5. PROLOPA [Concomitant]
     Dosage: 0.5 DF, QID
     Route: 048

REACTIONS (3)
  - Dementia Alzheimer^s type [Recovering/Resolving]
  - Haematemesis [Recovering/Resolving]
  - Asthenia [Recovered/Resolved]
